FAERS Safety Report 6289588-6 (Version None)
Quarter: 2009Q3

REPORT INFORMATION
  Report Type: 
  Country: None (occurrence: None)
  Receive Date: 20090728
  Receipt Date: 20090728
  Transmission Date: 20100115
  Serious: Yes (Life-Threatening)
  Sender: FDA-Public Use
  Company Number: None

PATIENT
  Age: 26 Year
  Sex: Male

DRUGS (2)
  1. HYDROMORPHONE HCL [Suspect]
     Indication: PAIN
     Dosage: 0.5 MG Q 6 H PRN IV
     Route: 042
     Dates: start: 20090103, end: 20090109
  2. CYCLOSPORINE [Suspect]
     Dosage: 125 MG Q12 H PO
     Route: 048
     Dates: start: 20090103, end: 20090109

REACTIONS (2)
  - CONVULSION [None]
  - CONVULSIVE THRESHOLD LOWERED [None]
